FAERS Safety Report 10084045 (Version 1)
Quarter: 2014Q2

REPORT INFORMATION
  Report Type: Spontaneous
  Country: CA (occurrence: None)
  Receive Date: 20140415
  Receipt Date: 20140415
  Transmission Date: 20141212
  Serious: Yes (Hospitalization)
  Sender: FDA-Public Use
  Company Number: CA-015193

PATIENT
  Age: 84 Year
  Sex: Male

DRUGS (11)
  1. FIRMAGON [Suspect]
     Indication: PROSTATE CANCER
     Route: 058
     Dates: start: 20131114
  2. RAMIPRIL [Concomitant]
  3. ASA [Concomitant]
  4. XARELTO [Concomitant]
  5. VITAMIN B12 NOS [Concomitant]
  6. VITAMIN D NOS [Concomitant]
  7. LIPITOR [Concomitant]
  8. EZETROL [Concomitant]
  9. CITALOPRAM [Concomitant]
  10. GUAIFENESIN/PHENYLEPHRINE/PENTOXYVERINE [Concomitant]
  11. GLUCOSAMINE [Concomitant]

REACTIONS (1)
  - Dyspnoea [None]
